FAERS Safety Report 8297287-4 (Version None)
Quarter: 2012Q2

REPORT INFORMATION
  Report Type: 
  Country: None (occurrence: None)
  Receive Date: 20120417
  Receipt Date: 20120404
  Transmission Date: 20120825
  Serious: Yes (Death)
  Sender: FDA-Public Use
  Company Number: B0795265A

PATIENT

DRUGS (3)
  1. ETOPOSIDE [Suspect]
     Indication: STEM CELL TRANSPLANT
     Dosage: UNK / UNK / UNKNOWN
  2. MELPHALAN HYDROCHLORIDE [Suspect]
     Indication: STEM CELL TRANSPLANT
     Dosage: UNK / UNK / UNKNOWN
  3. CARBOPLATIN [Suspect]
     Indication: STEM CELL TRANSPLANT
     Dosage: UNK / UNK / UNKNOWN

REACTIONS (3)
  - DIALYSIS [None]
  - FUNGAEMIA [None]
  - RENAL FAILURE [None]
